FAERS Safety Report 16362035 (Version 2)
Quarter: 2019Q2

REPORT INFORMATION
  Report Type: Spontaneous
  Country: US (occurrence: US)
  Receive Date: 20190528
  Receipt Date: 20190625
  Transmission Date: 20190711
  Serious: No
  Sender: FDA-Public Use
  Company Number: US-PFIZER INC-2019226474

PATIENT
  Age: 53 Year
  Sex: Female
  Weight: 63.39 kg

DRUGS (5)
  1. NOVOLOG [Concomitant]
     Active Substance: INSULIN ASPART
     Dosage: UNK
     Dates: start: 1977
  2. NASACORT [Concomitant]
     Active Substance: TRIAMCINOLONE ACETONIDE
     Dosage: UNK
     Dates: start: 201811
  3. ADVIL PM [Suspect]
     Active Substance: DIPHENHYDRAMINE CITRATE\IBUPROFEN
     Indication: SLEEP DISORDER
     Dosage: 600 MG, SINGLE
     Dates: start: 20190520, end: 20190520
  4. ADVIL PM [Suspect]
     Active Substance: DIPHENHYDRAMINE CITRATE\IBUPROFEN
     Indication: PROCEDURAL PAIN
  5. LANTUS [Concomitant]
     Active Substance: INSULIN GLARGINE
     Dosage: UNK
     Dates: start: 1977

REACTIONS (4)
  - Drug hypersensitivity [Unknown]
  - Nasal congestion [Recovered/Resolved]
  - Allergic reaction to excipient [Unknown]
  - Product use issue [Unknown]

NARRATIVE: CASE EVENT DATE: 201905
